FAERS Safety Report 20781158 (Version 1)
Quarter: 2022Q2

REPORT INFORMATION
  Report Type: Spontaneous
  Country: HR (occurrence: None)
  Receive Date: 20220504
  Receipt Date: 20220504
  Transmission Date: 20220720
  Serious: Yes (Other)
  Sender: FDA-Public Use
  Company Number: 2022A165129

PATIENT
  Sex: Male

DRUGS (2)
  1. IMFINZI [Suspect]
     Active Substance: DURVALUMAB
     Indication: Lung neoplasm malignant
     Route: 042
     Dates: start: 20200716, end: 202107
  2. CISPLATIN [Concomitant]
     Active Substance: CISPLATIN

REACTIONS (1)
  - Radiation pneumonitis [Unknown]
